FAERS Safety Report 26079300 (Version 1)
Quarter: 2025Q4

REPORT INFORMATION
  Report Type: Spontaneous
  Country: US (occurrence: US)
  Receive Date: 20251123
  Receipt Date: 20251123
  Transmission Date: 20260118
  Serious: No
  Sender: GALPHARM INTERNATIONAL
  Company Number: US-PERRIGO-25US008896

PATIENT
  Age: 23 Year
  Sex: Female
  Weight: 61.224 kg

DRUGS (4)
  1. OPILL [Suspect]
     Active Substance: NORGESTREL
     Indication: Contraception
     Dosage: 0.075 MG, QD
     Route: 048
     Dates: start: 20250501, end: 202506
  2. OPILL [Suspect]
     Active Substance: NORGESTREL
     Dosage: 0.075 MG, QD
     Route: 048
     Dates: start: 202506
  3. OPILL [Suspect]
     Active Substance: NORGESTREL
     Dosage: 0.075 MG, TWICE
     Route: 048
     Dates: start: 20250712, end: 20250712
  4. OPILL [Suspect]
     Active Substance: NORGESTREL
     Dosage: 0.075 MG, TWICE
     Route: 048
     Dates: start: 20250713, end: 20250713

REACTIONS (1)
  - Extra dose administered [Unknown]

NARRATIVE: CASE EVENT DATE: 20250712
